FAERS Safety Report 21307451 (Version 1)
Quarter: 2022Q3

REPORT INFORMATION
  Report Type: Spontaneous
  Country: US (occurrence: None)
  Receive Date: 20220907
  Receipt Date: 20220907
  Transmission Date: 20221027
  Serious: Yes (Death)
  Sender: FDA-Public Use
  Company Number: None

PATIENT
  Age: 9 Year
  Sex: Female

DRUGS (16)
  1. PULMOZYME [Suspect]
     Active Substance: DORNASE ALFA
     Dosage: FREQUENCY : DAILY;?
     Route: 055
     Dates: start: 20220520, end: 20220828
  2. ALBUTEROL SULFATE [Concomitant]
     Active Substance: ALBUTEROL SULFATE
     Dates: start: 20210303, end: 20220828
  3. ALBUTEROL 2.5MG/3ML NEB [Concomitant]
     Dates: start: 20220105, end: 20220828
  4. BACLOFEN [Concomitant]
     Active Substance: BACLOFEN
     Dates: start: 20220621, end: 20220828
  5. PULMICORT 0.5MG/2ML NEB [Concomitant]
     Dates: start: 20220105, end: 20220828
  6. CALCIUM CARBONATE 1250MG/5ML [Concomitant]
     Dates: start: 20220420, end: 20220828
  7. TEGRETOL 100MG/5ML [Concomitant]
     Dates: start: 20220721, end: 20220828
  8. CETIRIZINE 1MG/ML [Concomitant]
     Dates: start: 20220621, end: 20220828
  9. CLOBAZAM 2.5MG/ML [Concomitant]
     Dates: start: 20200224, end: 20220828
  10. DIAZEPAM 1MG/ML [Concomitant]
     Dates: start: 20220425, end: 20220828
  11. FLUTICASONE 50MCG/ACT NASAL [Concomitant]
     Dates: start: 20220621, end: 20220828
  12. CUVPOSA 0.2MG/ML [Concomitant]
     Dates: start: 20220701, end: 20220828
  13. TIZANIDINE [Concomitant]
     Active Substance: TIZANIDINE
     Dates: start: 20220627, end: 20220828
  14. BACTRIM 200-40MG/5ML [Concomitant]
     Dates: start: 20220804, end: 20220814
  15. CARAFATE 1G/10ML [Concomitant]
     Dates: start: 20220519, end: 20220828
  16. HYPERSAL 3.5% [Concomitant]
     Dates: start: 20220621, end: 20220828

REACTIONS (6)
  - Swelling [None]
  - Infection [None]
  - Electrolyte imbalance [None]
  - SARS-CoV-2 test positive [None]
  - Pulse absent [None]
  - Respiratory arrest [None]

NARRATIVE: CASE EVENT DATE: 20220828
